FAERS Safety Report 22350417 (Version 1)
Quarter: 2023Q2

REPORT INFORMATION
  Report Type: Spontaneous
  Country: GB (occurrence: GB)
  Receive Date: 20230522
  Receipt Date: 20230522
  Transmission Date: 20230722
  Serious: Yes (Other)
  Sender: FDA-Public Use
  Company Number: GB-ORGANON-O2304GBR001522

PATIENT
  Age: 19 Year
  Sex: Female

DRUGS (2)
  1. NEXPLANON [Suspect]
     Active Substance: ETONOGESTREL
     Indication: Contraception
     Dosage: 1 IMPLANT OF 68 MG,LEFT ARM FOR 3 YEARS
     Route: 059
     Dates: start: 20200316
  2. NEXPLANON [Suspect]
     Active Substance: ETONOGESTREL
     Indication: Contraception
     Dosage: 1 IMPLANT IN THE RIGHT UPPER ARM (DOMINANT ARM) FOR 3 YEARS
     Route: 059
     Dates: start: 20230316

REACTIONS (5)
  - Complication associated with device [Not Recovered/Not Resolved]
  - Device use error [Unknown]
  - Overdose [Unknown]
  - Device placement issue [Not Recovered/Not Resolved]
  - Incorrect product administration duration [Unknown]

NARRATIVE: CASE EVENT DATE: 20230316
